FAERS Safety Report 8116567-6 (Version None)
Quarter: 2012Q1

REPORT INFORMATION
  Report Type: 
  Country: None (occurrence: None)
  Receive Date: 20120206
  Receipt Date: 20120127
  Transmission Date: 20120608
  Serious: Yes (Other)
  Sender: FDA-Public Use
  Company Number: US-BAYER-201033147NA

PATIENT
  Sex: Female

DRUGS (1)
  1. YASMIN [Suspect]
     Indication: PREMENSTRUAL SYNDROME
     Dosage: UNK UNK, QD
     Route: 048
     Dates: start: 20060101, end: 20100101

REACTIONS (17)
  - PAIN IN EXTREMITY [None]
  - DYSPEPSIA [None]
  - DEEP VEIN THROMBOSIS [None]
  - OEDEMA PERIPHERAL [None]
  - VAGINAL HAEMORRHAGE [None]
  - INTERVERTEBRAL DISC DEGENERATION [None]
  - DIARRHOEA [None]
  - MOOD SWINGS [None]
  - CONSTIPATION [None]
  - ANXIETY [None]
  - WEIGHT INCREASED [None]
  - DEPRESSION [None]
  - CHOLECYSTECTOMY [None]
  - ABDOMINAL DISTENSION [None]
  - VENOUS INSUFFICIENCY [None]
  - GAIT DISTURBANCE [None]
  - FLATULENCE [None]
